FAERS Safety Report 8852322 (Version 2)
Quarter: 2012Q4

REPORT INFORMATION
  Report Type: 
  Country: FR (occurrence: FR)
  Receive Date: 20121022
  Receipt Date: 20121226
  Transmission Date: 20130627
  Serious: Yes (Hospitalization, Congenital Anomaly)
  Sender: FDA-Public Use
  Company Number: FR-SANOFI-AVENTIS-2012SA075084

PATIENT
  Age: 86 Year
  Sex: Female

DRUGS (22)
  1. IMOVANE [Suspect]
     Indication: DRUG USE FOR UNKNOWN INDICATION
     Route: 048
     Dates: start: 20120704
  2. LOVENOX [Suspect]
     Indication: DRUG USE FOR UNKNOWN INDICATION
     Route: 051
     Dates: start: 20120628, end: 20120704
  3. LOVENOX [Suspect]
     Indication: DRUG USE FOR UNKNOWN INDICATION
     Route: 051
     Dates: start: 20120717, end: 20120723
  4. PARIET [Suspect]
     Indication: DRUG USE FOR UNKNOWN INDICATION
     Route: 065
     Dates: start: 20120610
  5. SERESTA [Suspect]
     Indication: DRUG USE FOR UNKNOWN INDICATION
     Route: 065
     Dates: start: 20120713
  6. ARIXTRA [Suspect]
     Indication: DRUG USE FOR UNKNOWN INDICATION
     Route: 065
     Dates: start: 20120704, end: 20120717
  7. CIPROFLOXACIN [Suspect]
     Indication: DRUG USE FOR UNKNOWN INDICATION
     Route: 065
     Dates: start: 20120713, end: 20120723
  8. AUGMENTIN [Suspect]
     Indication: DRUG USE FOR UNKNOWN INDICATION
     Route: 065
     Dates: start: 20120718, end: 20120719
  9. AUGMENTIN [Suspect]
     Indication: DRUG USE FOR UNKNOWN INDICATION
     Route: 065
     Dates: start: 20120713, end: 20120713
  10. FLECAINE [Concomitant]
  11. L-THYROXINE [Concomitant]
     Route: 048
  12. SINTROM [Concomitant]
     Route: 048
     Dates: end: 20120627
  13. HAVLANE [Concomitant]
     Route: 048
  14. ZINNAT [Concomitant]
     Dates: start: 20120629, end: 20120704
  15. FURADANTINE [Concomitant]
     Route: 048
     Dates: start: 20120712, end: 20120713
  16. PEVARYL [Concomitant]
     Indication: MYCOSIS
     Route: 003
     Dates: start: 20120725
  17. BETADINE [Concomitant]
     Indication: WOUND CLEANING
     Route: 003
     Dates: start: 201207, end: 20120725
  18. DAKIN^S SOLUTION [Concomitant]
     Indication: WOUND CLEANING
     Route: 003
     Dates: start: 20120725, end: 20120725
  19. COUMADINE [Concomitant]
     Route: 048
  20. DIFFU K [Concomitant]
     Route: 048
  21. DOLIPRANE [Concomitant]
     Route: 048
  22. FRAXODI [Concomitant]

REACTIONS (5)
  - Dermatitis exfoliative [Recovered/Resolved]
  - Drug reaction with eosinophilia and systemic symptoms [Recovered/Resolved with Sequelae]
  - Alopecia [Recovering/Resolving]
  - Oedema [Unknown]
  - Erythema [Recovered/Resolved]
